FAERS Safety Report 13202847 (Version 1)
Quarter: 2017Q1

REPORT INFORMATION
  Report Type: Spontaneous
  Country: ES (occurrence: ES)
  Receive Date: 20170209
  Receipt Date: 20170209
  Transmission Date: 20170428
  Serious: Yes (Other)
  Sender: FDA-Public Use
  Company Number: ES-BRISTOL-MYERS SQUIBB COMPANY-BMS-2017-008606

PATIENT
  Age: 54 Year
  Sex: Male
  Weight: 82 kg

DRUGS (1)
  1. TRIGON DEPOT [Suspect]
     Active Substance: TRIAMCINOLONE ACETONIDE
     Indication: NASAL POLYPS
     Dosage: 40 MG, QMO
     Route: 030
     Dates: start: 20140213, end: 20160205

REACTIONS (2)
  - Product use issue [Recovered/Resolved with Sequelae]
  - Renal cancer [Recovered/Resolved with Sequelae]

NARRATIVE: CASE EVENT DATE: 20161109
